FAERS Safety Report 13814663 (Version 5)
Quarter: 2017Q3

REPORT INFORMATION
  Report Type: Report from Study
  Country: None (occurrence: ES)
  Receive Date: 20170731
  Receipt Date: 20170824
  Transmission Date: 20171127
  Serious: Yes (Hospitalization)
  Sender: FDA-Public Use
  Company Number: ES-ABBVIE-17P-144-2049118-00

PATIENT
  Age: 37 Year
  Sex: Male

DRUGS (11)
  1. CLIPPER [Concomitant]
     Active Substance: BECLOMETHASONE DIPROPIONATE
     Route: 048
     Dates: start: 20160330, end: 20160330
  2. CLIPPER [Concomitant]
     Active Substance: BECLOMETHASONE DIPROPIONATE
     Indication: COLITIS ULCERATIVE
     Dosage: HIGHEST MAINTAINED DOSE
     Route: 048
     Dates: start: 20140903, end: 20141002
  3. CLIPPER [Concomitant]
     Active Substance: BECLOMETHASONE DIPROPIONATE
     Route: 048
     Dates: start: 20170308, end: 20170423
  4. HUMIRA [Suspect]
     Active Substance: ADALIMUMAB
     Route: 058
     Dates: start: 20160224, end: 20160914
  5. IRON [Concomitant]
     Active Substance: IRON
     Indication: ANAEMIA
     Route: 042
     Dates: start: 20170308, end: 20170504
  6. CLIPPER [Concomitant]
     Active Substance: BECLOMETHASONE DIPROPIONATE
     Route: 048
     Dates: start: 20161005, end: 201612
  7. VEDOLIZUMAB [Concomitant]
     Active Substance: VEDOLIZUMAB
     Route: 042
     Dates: start: 20170601
  8. CLIPPER [Concomitant]
     Active Substance: BECLOMETHASONE DIPROPIONATE
     Dosage: HIGHEST MAINTAINED DOSE
     Route: 048
     Dates: start: 20150520, end: 20150618
  9. CLIPPER [Concomitant]
     Active Substance: BECLOMETHASONE DIPROPIONATE
     Dosage: HIGHEST MAINTAINED DOSE
     Route: 048
     Dates: start: 20151007, end: 20151104
  10. HUMIRA [Suspect]
     Active Substance: ADALIMUMAB
     Indication: COLITIS ULCERATIVE
     Dosage: DATE OF FIRST DOSE EVER (PRIOR TO REGISTRY)
     Route: 058
     Dates: start: 20150716
  11. VEDOLIZUMAB [Concomitant]
     Active Substance: VEDOLIZUMAB
     Indication: COLITIS ULCERATIVE
     Route: 042
     Dates: start: 20161103, end: 20170523

REACTIONS (1)
  - Colitis ulcerative [Recovered/Resolved]

NARRATIVE: CASE EVENT DATE: 20170721
